FAERS Safety Report 6040088-8 (Version None)
Quarter: 2009Q1

REPORT INFORMATION
  Report Type: 
  Country: None (occurrence: None)
  Receive Date: 20090116
  Receipt Date: 20080414
  Transmission Date: 20090719
  Serious: Yes (Hospitalization)
  Sender: FDA-Public Use
  Company Number: US-BRISTOL-MYERS SQUIBB COMPANY-14007744

PATIENT
  Age: 49 Year
  Sex: Female
  Weight: 85 kg

DRUGS (6)
  1. ABILIFY [Suspect]
     Indication: BIPOLAR DISORDER
     Route: 048
     Dates: start: 20070904
  2. ZOLOFT [Concomitant]
     Route: 048
  3. DIOVAN [Concomitant]
     Dosage: 1 DOSAGE FORM=8/12.5MG
     Route: 048
  4. VYTORIN [Concomitant]
     Dosage: 1 DOSAGE FORM=10/20MG
     Route: 048
  5. WELLBUTRIN XL [Concomitant]
     Route: 048
  6. PREVACID [Concomitant]
     Route: 048

REACTIONS (7)
  - ANOREXIA [None]
  - CHEILITIS [None]
  - FATIGUE [None]
  - HYPERGLYCAEMIA [None]
  - LOSS OF CONSCIOUSNESS [None]
  - THIRST [None]
  - VISION BLURRED [None]
